FAERS Safety Report 4350616-6 (Version None)
Quarter: 2004Q2

REPORT INFORMATION
  Report Type: 
  Country: None (occurrence: None)
  Receive Date: 20040429
  Receipt Date: 20040429
  Transmission Date: 20050107
  Serious: Yes (Death)
  Sender: FDA-Public Use
  Company Number: None

PATIENT
  Age: 82 Year
  Sex: Male
  Weight: 67 kg

DRUGS (5)
  1. TAXOTERE [Suspect]
     Indication: LUNG NEOPLASM MALIGNANT
     Dosage: 70 MG IV Q 21D
     Route: 042
     Dates: start: 20040423
  2. GEMCITABINE [Suspect]
     Indication: LUNG NEOPLASM MALIGNANT
     Dosage: 1760 MG IV Q 21 D
     Route: 042
     Dates: start: 20040423
  3. ZOFRAN [Concomitant]
  4. DECADRON [Concomitant]
  5. BENADRYL [Concomitant]

REACTIONS (4)
  - BLOOD POTASSIUM INCREASED [None]
  - CARDIAC ENZYMES INCREASED [None]
  - PCO2 DECREASED [None]
  - RESPIRATORY DISTRESS [None]
